FAERS Safety Report 13945730 (Version 2)
Quarter: 2017Q4

REPORT INFORMATION
  Report Type: Report from Study
  Country: None (occurrence: CA)
  Receive Date: 20170907
  Receipt Date: 20171209
  Transmission Date: 20180320
  Serious: Yes (Other)
  Sender: FDA-Public Use
  Company Number: CA-ABBVIE-17K-028-2090504-00

PATIENT
  Age: 35 Year
  Sex: Female

DRUGS (1)
  1. HUMIRA [Suspect]
     Active Substance: ADALIMUMAB
     Indication: CROHN^S DISEASE
     Route: 058
     Dates: start: 20110414

REACTIONS (7)
  - Weight decreased [Not Recovered/Not Resolved]
  - Cholecystectomy [Recovering/Resolving]
  - Malaise [Recovering/Resolving]
  - Post procedural complication [Not Recovered/Not Resolved]
  - Psoriasis [Unknown]
  - Intestinal obstruction [Recovering/Resolving]
  - Procedural complication [Recovered/Resolved]

NARRATIVE: CASE EVENT DATE: 2017
